FAERS Safety Report 24835144 (Version 1)
Quarter: 2025Q1

REPORT INFORMATION
  Report Type: Report from Study
  Country: CA (occurrence: CA)
  Receive Date: 20250113
  Receipt Date: 20250113
  Transmission Date: 20250408
  Serious: Yes (Hospitalization)
  Sender: ROCHE
  Company Number: CA-ROCHE-10000174333

PATIENT
  Age: 58 Year
  Sex: Female

DRUGS (1)
  1. OCREVUS [Suspect]
     Active Substance: OCRELIZUMAB
     Indication: Primary progressive multiple sclerosis
     Dosage: MORE DOSAGE INFORMATION IS 300 MG AT DAY 0 AND 14, THEN 600 MG EVERY 6 MONTHS
     Route: 042
     Dates: start: 20190215

REACTIONS (4)
  - COVID-19 [Recovered/Resolved]
  - Hypotension [Recovered/Resolved]
  - Muscular weakness [Not Recovered/Not Resolved]
  - Temperature intolerance [Recovered/Resolved with Sequelae]

NARRATIVE: CASE EVENT DATE: 20241021
